FAERS Safety Report 7233594-1 (Version None)
Quarter: 2011Q1

REPORT INFORMATION
  Report Type: 
  Country: None (occurrence: None)
  Receive Date: 20110119
  Receipt Date: 20100120
  Transmission Date: 20110831
  Serious: No
  Sender: FDA-Public Use
  Company Number: US-PFIZER INC-2010008771

PATIENT
  Sex: Female
  Weight: 63.5 kg

DRUGS (2)
  1. COREG [Concomitant]
     Indication: CARDIAC DISORDER
  2. AROMASIN [Suspect]
     Indication: NEOPLASM MALIGNANT
     Dosage: 25 MG, 1X/DAY
     Route: 048
     Dates: start: 20091101

REACTIONS (3)
  - DISCOMFORT [None]
  - PAIN IN EXTREMITY [None]
  - BACK PAIN [None]
